FAERS Safety Report 15588072 (Version 3)
Quarter: 2019Q2

REPORT INFORMATION
  Report Type: Spontaneous
  Country: US (occurrence: US)
  Receive Date: 20181105
  Receipt Date: 20190613
  Transmission Date: 20190711
  Serious: Yes (Hospitalization, Other)
  Sender: FDA-Public Use
  Company Number: US-PFIZER INC-2018447661

PATIENT
  Age: 63 Year
  Sex: Female
  Weight: 104.31 kg

DRUGS (2)
  1. ARAVA [Concomitant]
     Active Substance: LEFLUNOMIDE
     Dosage: 10 MG, DAILY
  2. XELJANZ [Suspect]
     Active Substance: TOFACITINIB CITRATE
     Indication: RHEUMATOID ARTHRITIS
     Dosage: 5 MG, 1X/DAY
     Route: 048
     Dates: start: 20190107, end: 20190114

REACTIONS (14)
  - Deep vein thrombosis [Unknown]
  - Pulmonary oedema [Unknown]
  - Pulmonary embolism [Recovering/Resolving]
  - Blood urine present [Recovered/Resolved]
  - Respiratory failure [Unknown]
  - Dyspnoea [Unknown]
  - Cardiac failure congestive [Unknown]
  - Pneumonia [Unknown]
  - Secretion discharge [Unknown]
  - Thrombosis [Unknown]
  - Off label use [Unknown]
  - Cough [Recovered/Resolved]
  - Muscle spasms [Unknown]
  - Product use issue [Unknown]

NARRATIVE: CASE EVENT DATE: 201901
